FAERS Safety Report 7946951-2 (Version None)
Quarter: 2011Q4

REPORT INFORMATION
  Report Type: 
  Country: None (occurrence: None)
  Receive Date: 20111129
  Receipt Date: 20100601
  Transmission Date: 20120403
  Serious: Yes (Other)
  Sender: FDA-Public Use
  Company Number: PHHY2010TW40856

PATIENT
  Sex: Male

DRUGS (3)
  1. GLEEVEC [Suspect]
     Indication: CHRONIC MYELOID LEUKAEMIA
     Dosage: 400 MG
     Route: 048
  2. GLEEVEC [Suspect]
     Dosage: IN THE MORNING AND IN THE EVENING
  3. GLEEVEC [Suspect]
     Dosage: 400 MG IN THE EVENING
     Route: 048

REACTIONS (10)
  - SCAB [None]
  - MIGRAINE [None]
  - PLATELET COUNT DECREASED [None]
  - FATIGUE [None]
  - BACK PAIN [None]
  - PAIN IN EXTREMITY [None]
  - RASH [None]
  - NEPHROLITHIASIS [None]
  - MUSCLE SPASMS [None]
  - EYE SWELLING [None]
